FAERS Safety Report 23822455 (Version 1)
Quarter: 2024Q2

REPORT INFORMATION
  Report Type: Spontaneous
  Country: CN (occurrence: CN)
  Receive Date: 20240506
  Receipt Date: 20240506
  Transmission Date: 20240715
  Serious: Yes (Hospitalization, Other)
  Sender: FDA-Public Use
  Company Number: CN-SANDOZ-SDZ2024CN044448

PATIENT
  Age: 60 Year
  Sex: Female

DRUGS (4)
  1. VORICONAZOLE [Suspect]
     Active Substance: VORICONAZOLE
     Indication: Acute myeloid leukaemia
     Dosage: 0.2 G, BID
     Route: 042
     Dates: start: 20240331, end: 20240403
  2. VORICONAZOLE [Suspect]
     Active Substance: VORICONAZOLE
     Indication: Pneumonia fungal
  3. VORICONAZOLE [Suspect]
     Active Substance: VORICONAZOLE
     Indication: Acute myeloid leukaemia
     Dosage: 200 MG, Q12H
     Route: 048
     Dates: start: 20240330, end: 20240331
  4. VORICONAZOLE [Suspect]
     Active Substance: VORICONAZOLE
     Indication: Pneumonia fungal
     Dosage: UNK
     Route: 065
     Dates: start: 20240331

REACTIONS (3)
  - Hallucination [Unknown]
  - Mental disorder [Unknown]
  - Persecutory delusion [Unknown]

NARRATIVE: CASE EVENT DATE: 20240403
